FAERS Safety Report 9026706 (Version 1)
Quarter: 2013Q1

REPORT INFORMATION
  Report Type: Spontaneous
  Country: IT (occurrence: IT)
  Receive Date: 20130123
  Receipt Date: 20130123
  Transmission Date: 20140127
  Serious: Yes (Hospitalization)
  Sender: FDA-Public Use
  Company Number: PHHY2013IT005685

PATIENT
  Age: 82 Year
  Sex: Female

DRUGS (8)
  1. FUROSEMIDE [Suspect]
     Indication: CARDIAC FAILURE
     Dosage: 25 MG,DAILY
     Route: 048
     Dates: start: 20090101, end: 20121018
  2. COUMADIN [Concomitant]
  3. ATORVASTATIN [Concomitant]
  4. BISOPROLOL [Concomitant]
     Indication: CARDIAC FAILURE
  5. OMEPRAZOLE [Concomitant]
  6. ENALAPRIL [Concomitant]
  7. AMIODARONE [Concomitant]
  8. NITROGLYCERIN [Concomitant]

REACTIONS (1)
  - Presyncope [Recovered/Resolved]
